FAERS Safety Report 22376674 (Version 6)
Quarter: 2024Q3

REPORT INFORMATION
  Report Type: Report from Study
  Country: CA (occurrence: CA)
  Receive Date: 20230528
  Receipt Date: 20240723
  Transmission Date: 20241017
  Serious: Yes (Life-Threatening, Other)
  Sender: AMGEN
  Company Number: CA-002147023-NVSC2023CA117729

PATIENT
  Age: 18 Year
  Sex: Male

DRUGS (1)
  1. AIMOVIG [Suspect]
     Active Substance: ERENUMAB-AOOE
     Indication: Migraine
     Dosage: 140 MG, QMO
     Route: 058
     Dates: start: 20191107

REACTIONS (4)
  - Coma [Unknown]
  - Malaise [Unknown]
  - Depression [Unknown]
  - Somnolence [Unknown]
